FAERS Safety Report 4620663-5 (Version None)
Quarter: 2005Q1

REPORT INFORMATION
  Report Type: 
  Country: None (occurrence: None)
  Receive Date: 20050325
  Receipt Date: 20050316
  Transmission Date: 20050727
  Serious: Yes (Hospitalization)
  Sender: FDA-Public Use
  Company Number: TPA2004A01249

PATIENT
  Sex: Male

DRUGS (3)
  1. ACTOS [Suspect]
     Indication: DIABETES MELLITUS
     Dosage: 45 MG, 1 IN 1 D, PER ORAL
     Route: 048
     Dates: start: 20000101, end: 20041011
  2. HUMULIN N [Suspect]
     Indication: DIABETES MELLITUS
     Dosage: 40 IU, 1 IN 1 D
     Dates: start: 20040601, end: 20041115
  3. HUMALOG [Suspect]
     Indication: DIABETES MELLITUS
     Dosage: SLIDING SCALE
     Dates: start: 20041001

REACTIONS (9)
  - ABSCESS [None]
  - ANAEMIA [None]
  - BLINDNESS [None]
  - BLOOD GLUCOSE INCREASED [None]
  - COLON CANCER [None]
  - DIABETIC RETINOPATHY [None]
  - INFECTION [None]
  - URINARY TRACT DISORDER [None]
  - URINARY TRACT INFECTION [None]
